FAERS Safety Report 7375411-5 (Version None)
Quarter: 2011Q1

REPORT INFORMATION
  Report Type: 
  Country: None (occurrence: None)
  Receive Date: 20110325
  Receipt Date: 20100812
  Transmission Date: 20110831
  Serious: Yes (Other)
  Sender: FDA-Public Use
  Company Number: PHHY2010DE90760

PATIENT
  Sex: Male

DRUGS (1)
  1. EXTAVIA [Suspect]
     Dosage: 1 ML, UNK
     Route: 058
     Dates: start: 20100723

REACTIONS (4)
  - INJECTION SITE PAIN [None]
  - VISUAL IMPAIRMENT [None]
  - UHTHOFF'S PHENOMENON [None]
  - BALANCE DISORDER [None]
